FAERS Safety Report 5884214-X (Version None)
Quarter: 2008Q3

REPORT INFORMATION
  Report Type: 
  Country: None (occurrence: None)
  Receive Date: 20080911
  Receipt Date: 20080902
  Transmission Date: 20090109
  Serious: Yes (Other)
  Sender: FDA-Public Use
  Company Number: 2008SP018079

PATIENT
  Age: 82 Year
  Sex: Male

DRUGS (1)
  1. MIRALAX [Suspect]
     Indication: OFF LABEL USE
     Dosage: 17 GM; QD; PO
     Route: 048

REACTIONS (7)
  - ANOREXIA [None]
  - ASTHENIA [None]
  - DIARRHOEA [None]
  - FAECES PALE [None]
  - MALAISE [None]
  - OVERDOSE [None]
  - WEIGHT DECREASED [None]
